FAERS Safety Report 8981356 (Version 1)
Quarter: 2012Q4

REPORT INFORMATION
  Report Type: 
  Country: US (occurrence: US)
  Receive Date: 20121221
  Receipt Date: 20121221
  Transmission Date: 20130627
  Serious: Yes (Life-Threatening, Hospitalization)
  Sender: FDA-Public Use
  Company Number: US-BAYER-2012-133371

PATIENT
  Age: 26 Year
  Sex: Female
  Weight: 95.24 kg

DRUGS (12)
  1. YAZ [Suspect]
     Dosage: UNK
     Dates: start: 20070927, end: 20071126
  2. YASMIN [Suspect]
     Dosage: UNK
     Dates: start: 20040528, end: 20070731
  3. IMITREX [Concomitant]
     Indication: HEADACHE
  4. TOPAMAX [Concomitant]
     Dosage: 50 mg, QD
     Route: 048
  5. ZOLOFT [Concomitant]
     Dosage: 50 mg, QD
     Route: 048
  6. NEXIUM [Concomitant]
     Dosage: 40 mg, QD
     Route: 048
  7. DARVOCET [Concomitant]
     Indication: HEADACHE
  8. DEPAKOTE [Concomitant]
     Dosage: 500 mg, TID, one in morning and two in evening
     Route: 042
  9. PROTONIX [Concomitant]
  10. MAGNESIUM SULFATE [Concomitant]
     Route: 042
  11. TORADOL [Concomitant]
     Indication: HEADACHE
     Route: 042
  12. EXCEDRIN MIGRAINE [Concomitant]
     Indication: MIGRAINE

REACTIONS (1)
  - Pulmonary embolism [None]
